FAERS Safety Report 25412121 (Version 1)
Quarter: 2025Q2

REPORT INFORMATION
  Report Type: Spontaneous
  Country: US (occurrence: US)
  Receive Date: 20250609
  Receipt Date: 20250609
  Transmission Date: 20250716
  Serious: Yes (Hospitalization, Other)
  Sender: RANBAXY
  Company Number: US-SUN PHARMACEUTICAL INDUSTRIES INC-2025R1-510929

PATIENT
  Age: 26 Year
  Sex: Female

DRUGS (3)
  1. CEFTRIAXONE [Suspect]
     Active Substance: CEFTRIAXONE
     Indication: Pneumonia
     Route: 042
  2. AZITHROMYCIN [Suspect]
     Active Substance: AZITHROMYCIN
     Indication: Pneumonia
     Route: 065
  3. LABETALOL [Suspect]
     Active Substance: LABETALOL
     Indication: Hypertension
     Route: 065

REACTIONS (7)
  - Exposure during pregnancy [Unknown]
  - Hypertension [Unknown]
  - Pre-eclampsia [Unknown]
  - Haemolysis [Unknown]
  - Hepatic enzyme increased [Unknown]
  - Platelet count decreased [Unknown]
  - Premature delivery [Unknown]
